FAERS Safety Report 9453594 (Version 1)
Quarter: 2013Q3

REPORT INFORMATION
  Report Type: Spontaneous
  Country: US (occurrence: US)
  Receive Date: 20130812
  Receipt Date: 20130812
  Transmission Date: 20140515
  Serious: Yes (Hospitalization, Other)
  Sender: FDA-Public Use
  Company Number: US-JNJFOC-20130800690

PATIENT
  Sex: Female
  Weight: 89.3 kg

DRUGS (8)
  1. XARELTO [Suspect]
     Indication: THROMBOSIS PROPHYLAXIS
     Route: 048
     Dates: start: 20130417, end: 20130422
  2. XARELTO [Suspect]
     Indication: KNEE OPERATION
     Route: 048
     Dates: start: 20130417, end: 20130422
  3. METFORMIN ER [Concomitant]
     Route: 048
  4. CHROMIUM PICOLINATE [Concomitant]
     Route: 048
  5. ZOFRAN [Concomitant]
     Indication: VOMITING
     Dosage: EVERY 8 HRS, AS NEEDED
     Route: 048
  6. ZOFRAN [Concomitant]
     Indication: NAUSEA
     Dosage: EVERY 8 HRS, AS NEEDED
     Route: 048
  7. COLACE [Concomitant]
     Route: 048
  8. FERROUS SULPHATE [Concomitant]
     Route: 048

REACTIONS (4)
  - Chest discomfort [Recovering/Resolving]
  - Cough [Recovering/Resolving]
  - Pulmonary embolism [Recovering/Resolving]
  - Dyspnoea [Recovering/Resolving]
